FAERS Safety Report 5809856-9 (Version None)
Quarter: 2008Q3

REPORT INFORMATION
  Report Type: 
  Country: None (occurrence: None)
  Receive Date: 20080709
  Receipt Date: 20080627
  Transmission Date: 20090109
  Serious: Yes (Other)
  Sender: FDA-Public Use
  Company Number: 2008017161

PATIENT
  Sex: Female

DRUGS (1)
  1. NICORETTE [Suspect]
     Dosage: TRANSDERMAL
     Route: 062
     Dates: start: 20080601

REACTIONS (2)
  - CHEST DISCOMFORT [None]
  - WHEEZING [None]
